FAERS Safety Report 4751140-9 (Version None)
Quarter: 2005Q3

REPORT INFORMATION
  Report Type: 
  Country: None (occurrence: None)
  Receive Date: 20050822
  Receipt Date: 20050809
  Transmission Date: 20060218
  Serious: Yes (Other)
  Sender: FDA-Public Use
  Company Number: 2005113404

PATIENT
  Age: 53 Year
  Sex: Male
  Weight: 90.7194 kg

DRUGS (1)
  1. ZITHROMAX [Suspect]
     Indication: PHARYNGOLARYNGEAL PAIN
     Dosage: 500 MG (250 MG, 1 IN 1 D) ORAL
     Route: 048
     Dates: start: 20050805, end: 20050805

REACTIONS (3)
  - ANAEMIA [None]
  - FAECES DISCOLOURED [None]
  - LETHARGY [None]
